FAERS Safety Report 13592480 (Version 4)
Quarter: 2020Q3

REPORT INFORMATION
  Report Type: Spontaneous
  Country: DE (occurrence: GB)
  Receive Date: 20170530
  Receipt Date: 20200702
  Transmission Date: 20201102
  Serious: Yes (Hospitalization, Other)
  Sender: FDA-Public Use
  Company Number: DE-ALKEM LABORATORIES LIMITED-DE-ALKEM-2017-00266

PATIENT
  Age: 54 Year
  Sex: Female

DRUGS (8)
  1. QUETIAPINE FUMARATE. [Suspect]
     Active Substance: QUETIAPINE FUMARATE
     Dosage: 50 MG, NON?SUSTAINED?RELEASE
     Route: 065
  2. QUETIAPINE FUMARATE. [Suspect]
     Active Substance: QUETIAPINE FUMARATE
     Indication: SCHIZOAFFECTIVE DISORDER
     Dosage: 600 MG, UNK
     Route: 065
     Dates: start: 2014
  3. VALPROAT [Suspect]
     Active Substance: VALPROATE SODIUM
     Indication: SCHIZOAFFECTIVE DISORDER
     Dosage: 600 MG, OD
     Route: 065
     Dates: start: 2014
  4. MIRTAZAPINE. [Concomitant]
     Active Substance: MIRTAZAPINE
     Indication: SCHIZOAFFECTIVE DISORDER
     Dosage: UNK
     Route: 065
     Dates: start: 2012
  5. SERTRALINE [Concomitant]
     Active Substance: SERTRALINE HYDROCHLORIDE
     Indication: SCHIZOAFFECTIVE DISORDER
     Dosage: 50 MG, UNK
     Route: 065
  6. OLANZAPINE. [Concomitant]
     Active Substance: OLANZAPINE
     Indication: SCHIZOAFFECTIVE DISORDER
     Dosage: UNK
     Route: 065
     Dates: start: 2012
  7. VALPROAT [Suspect]
     Active Substance: VALPROATE SODIUM
     Dosage: 1200 MILLIGRAM, QD
     Route: 065
     Dates: start: 2014
  8. ARIPIPRAZOLE. [Concomitant]
     Active Substance: ARIPIPRAZOLE
     Indication: SCHIZOAFFECTIVE DISORDER
     Dosage: 5 MG, UNK
     Route: 065

REACTIONS (8)
  - Visual acuity reduced [Recovering/Resolving]
  - Balance disorder [Recovering/Resolving]
  - Tremor [Recovering/Resolving]
  - Cognitive disorder [Recovering/Resolving]
  - Dizziness [Recovering/Resolving]
  - Muscle rigidity [Recovering/Resolving]
  - Gait disturbance [Recovering/Resolving]
  - Memory impairment [Recovering/Resolving]
